FAERS Safety Report 9759594 (Version 1)
Quarter: 2013Q4

REPORT INFORMATION
  Report Type: Spontaneous
  Country: US (occurrence: US)
  Receive Date: 20131216
  Receipt Date: 20131216
  Transmission Date: 20140711
  Serious: No
  Sender: FDA-Public Use
  Company Number: US-GILEAD-2010-0028138

PATIENT
  Sex: Female
  Weight: 88.45 kg

DRUGS (20)
  1. LETAIRIS [Suspect]
     Indication: PULMONARY ARTERIAL HYPERTENSION
     Route: 048
     Dates: start: 20090414
  2. BYSTOLIC [Concomitant]
  3. CYMBALTA [Concomitant]
  4. OXYGEN [Concomitant]
  5. FOLIC ACID [Concomitant]
  6. PROTONIX [Concomitant]
  7. AVELOX [Concomitant]
  8. PREMARIN [Concomitant]
  9. TEKTURNA [Concomitant]
  10. ALLEGRA [Concomitant]
  11. OMEGA 3 [Concomitant]
  12. HCTZ [Concomitant]
  13. CALCIUM [Concomitant]
  14. SPIRIVA [Concomitant]
  15. MULTIVITAMIN [Concomitant]
  16. LEVOXYL [Concomitant]
  17. BENICAR [Concomitant]
  18. PLAVIX [Concomitant]
  19. PROAIR [Concomitant]
  20. POTASSIUM CHLORIDE [Concomitant]

REACTIONS (1)
  - Nasal congestion [Unknown]
